FAERS Safety Report 13416617 (Version 1)
Quarter: 2020Q3

REPORT INFORMATION
  Report Type: Spontaneous
  Country: FR (occurrence: FR)
  Receive Date: 20170407
  Receipt Date: 20170407
  Transmission Date: 20201105
  Serious: Yes (Hospitalization)
  Sender: FDA-Public Use
  Company Number: ALCN2017FR002447

PATIENT
  Age: 88 Year
  Sex: Female

DRUGS (23)
  1. TOPALGIC (SUPROFEN) [Suspect]
     Active Substance: SUPROFEN
     Indication: PAIN
     Dosage: 50 MG, ONCE/SINGLE
     Route: 048
     Dates: start: 20170228, end: 20170228
  2. CORTANCYL [Suspect]
     Active Substance: PREDNISONE
     Indication: POSTOPERATIVE CARE
     Dosage: UNK
     Route: 048
     Dates: start: 20170228, end: 20170309
  3. OFLOCET [Suspect]
     Active Substance: OFLOXACIN
     Indication: ANTIBIOTIC PROPHYLAXIS
     Dosage: 200 MG, QD
     Route: 048
     Dates: start: 20170227, end: 20170227
  4. STERDEX [Suspect]
     Active Substance: DEXAMETHASONE\OXYTETRACYCLINE
     Indication: ANTIBIOTIC PROPHYLAXIS
     Dosage: UNK
     Route: 047
     Dates: start: 20170227, end: 20170228
  5. SUFENTANIL [Suspect]
     Active Substance: SUFENTANIL
     Indication: PREOPERATIVE CARE
     Dosage: 15 UG, ONCE/SINGLE
     Route: 042
     Dates: start: 20170227, end: 20170227
  6. COMBIGAN [Suspect]
     Active Substance: BRIMONIDINE TARTRATE\TIMOLOL MALEATE
     Indication: POSTOPERATIVE CARE
     Dosage: 1 GTT, BID
     Route: 047
     Dates: start: 20170228, end: 20170309
  7. VESICARE [Concomitant]
     Active Substance: SOLIFENACIN SUCCINATE
     Indication: PRODUCT USED FOR UNKNOWN INDICATION
     Route: 065
  8. NEFOPAM HYDROCHLORIDE [Suspect]
     Active Substance: NEFOPAM HYDROCHLORIDE
     Indication: PAIN PROPHYLAXIS
     Dosage: 20 MG, ONCE/SINGLE
     Route: 042
     Dates: start: 20170227, end: 20170227
  9. NEOSYNEPHRINE [Suspect]
     Active Substance: PHENYLEPHRINE HYDROCHLORIDE
     Dosage: 1 DF, ONCE/SINGLE
     Route: 047
     Dates: start: 20170228, end: 20170228
  10. TOBRADEX [Suspect]
     Active Substance: DEXAMETHASONE\TOBRAMYCIN
     Indication: ANTIBIOTIC PROPHYLAXIS
     Dosage: 1 GTT, TID
     Route: 047
     Dates: start: 20170228, end: 20170309
  11. EPHEDRINE. [Suspect]
     Active Substance: EPHEDRINE
     Indication: PREOPERATIVE CARE
     Dosage: 6 MG, ONCE/SINGLE
     Route: 042
     Dates: start: 20170227, end: 20170227
  12. METHYLPREDNISOLONE. [Suspect]
     Active Substance: METHYLPREDNISOLONE
     Indication: PREOPERATIVE CARE
     Dosage: 120 MG, ONCE/SINGLE
     Route: 042
     Dates: start: 20170227, end: 20170227
  13. PROPOFOL. [Suspect]
     Active Substance: PROPOFOL
     Indication: PREOPERATIVE CARE
     Dosage: 150 MG, ONCE/SINGLE
     Route: 042
     Dates: start: 20170227, end: 20170227
  14. DEXAFREE [Suspect]
     Active Substance: DEXAMETHASONE SODIUM PHOSPHATE
     Indication: POSTOPERATIVE CARE
     Dosage: 1 DF, ONCE/SINGLE
     Route: 047
     Dates: start: 20170228, end: 20170228
  15. PERFALGAN [Suspect]
     Active Substance: ACETAMINOPHEN
     Indication: PAIN PROPHYLAXIS
     Dosage: 1 G, ONCE/SINGLE
     Route: 042
     Dates: start: 20170227, end: 20170227
  16. NEOSYNEPHRINE [Suspect]
     Active Substance: PHENYLEPHRINE HYDROCHLORIDE
     Indication: PREOPERATIVE CARE
     Dosage: 100 MG, ONCE/SINGLE
     Route: 042
     Dates: start: 20170227, end: 20170227
  17. MYDRIATICUM [Suspect]
     Active Substance: TROPICAMIDE
     Indication: MYDRIASIS
     Dosage: 1 DF, ONCE/SINGLE
     Route: 047
     Dates: start: 20170228, end: 20170228
  18. DESFLURANE. [Suspect]
     Active Substance: DESFLURANE
     Indication: PREOPERATIVE CARE
     Dosage: UNK
     Route: 055
     Dates: start: 20170227, end: 20170227
  19. TRACRIUM [Suspect]
     Active Substance: ATRACURIUM BESYLATE
     Indication: PREOPERATIVE CARE
     Dosage: 20 MG, ONCE/SINGLE
     Route: 042
     Dates: start: 20170227, end: 20170227
  20. RIFAMYCIN ^CHIBRET^ [Suspect]
     Active Substance: RIFAMYCIN
     Indication: POSTOPERATIVE CARE
     Dosage: 1 DF, TID, 1000000 IU / 100G
     Route: 047
     Dates: start: 20170228, end: 20170306
  21. MICARDIS [Concomitant]
     Active Substance: TELMISARTAN
     Indication: PRODUCT USED FOR UNKNOWN INDICATION
     Route: 065
  22. AZYTER [Suspect]
     Active Substance: AZITHROMYCIN ANHYDROUS
     Indication: ANTIBIOTIC PROPHYLAXIS
     Dosage: 1 DF, ONCE/SINGLE
     Route: 047
     Dates: start: 20170228, end: 20170228
  23. ATARAX [Concomitant]
     Active Substance: HYDROXYZINE HYDROCHLORIDE
     Indication: RASH
     Dosage: 25 MG, QD
     Route: 048

REACTIONS (1)
  - Drug reaction with eosinophilia and systemic symptoms [Recovering/Resolving]

NARRATIVE: CASE EVENT DATE: 20170306
